FAERS Safety Report 16985758 (Version 1)
Quarter: 2019Q4

REPORT INFORMATION
  Report Type: Spontaneous
  Country: US (occurrence: US)
  Receive Date: 20190917
  Receipt Date: 20190917
  Transmission Date: 20200122
  Serious: Yes (Hospitalization)
  Sender: FDA-Public Use
  Company Number: None

PATIENT
  Age: 75 Year
  Sex: Male
  Weight: 113.85 kg

DRUGS (1)
  1. DIPHENHYDRAMINE. [Suspect]
     Active Substance: DIPHENHYDRAMINE
     Indication: MULTIPLE ALLERGIES
     Route: 048
     Dates: start: 20190603, end: 20190605

REACTIONS (10)
  - Urinary tract infection [None]
  - Malaise [None]
  - Urosepsis [None]
  - Catheter site haemorrhage [None]
  - Feeling hot [None]
  - Urinary retention [None]
  - Chills [None]
  - Leukocytosis [None]
  - Pyrexia [None]
  - Klebsiella test positive [None]

NARRATIVE: CASE EVENT DATE: 20190610
